FAERS Safety Report 8978119 (Version 1)
Quarter: 2012Q4

REPORT INFORMATION
  Report Type: 
  Country: BR (occurrence: BR)
  Receive Date: 20121220
  Receipt Date: 20121220
  Transmission Date: 20130627
  Serious: Yes (Hospitalization, Other)
  Sender: FDA-Public Use
  Company Number: BR-B.I. PHARMACEUTICALS,INC./RIDGEFIELD-2012-BR-01404BR

PATIENT
  Sex: Male
  Weight: 87 kg

DRUGS (5)
  1. SPIRIVA RESPIMAT [Suspect]
     Indication: CHRONIC OBSTRUCTIVE PULMONARY DISEASE
     Dosage: 5 mcg
     Route: 055
     Dates: start: 2008
  2. LOSARTAN [Concomitant]
  3. AMIODARONA [Concomitant]
  4. ESPIROLACTONA [Concomitant]
  5. LASIX [Concomitant]

REACTIONS (2)
  - Arrhythmia [Not Recovered/Not Resolved]
  - Cardiac failure [Not Recovered/Not Resolved]
